FAERS Safety Report 9717592 (Version 1)
Quarter: 2013Q4

REPORT INFORMATION
  Report Type: Spontaneous
  Country: JP (occurrence: JP)
  Receive Date: 20131127
  Receipt Date: 20131127
  Transmission Date: 20140711
  Serious: Yes (Other)
  Sender: FDA-Public Use
  Company Number: JP-PFIZER INC-2013337809

PATIENT
  Age: 71 Year
  Sex: Male

DRUGS (4)
  1. LYRICA [Suspect]
     Indication: INTERVERTEBRAL DISC PROTRUSION
     Dosage: 150 MG, DAILY
     Route: 048
     Dates: start: 201310
  2. HERBESSER ^TANABE^ [Concomitant]
     Dosage: 100, NO UNIT PROVIDED
     Route: 048
  3. BAYASPIRIN [Concomitant]
     Dosage: 100, NO UNIT PROVIDED
     Route: 048
  4. PLAVIX [Concomitant]
     Dosage: 75 DAILY, NO UNIT PROVIDED
     Route: 048

REACTIONS (3)
  - Off label use [Unknown]
  - Cardiac hypertrophy [Unknown]
  - Pain [Unknown]
